FAERS Safety Report 9607746 (Version 1)
Quarter: 2013Q4

REPORT INFORMATION
  Report Type: Spontaneous
  Country: IT (occurrence: None)
  Receive Date: 20131007
  Receipt Date: 20131007
  Transmission Date: 20140711
  Serious: Yes (Hospitalization)
  Sender: FDA-Public Use
  Company Number: AG-2013-015432

PATIENT
  Age: 91 Year
  Sex: Female
  Weight: 70 kg

DRUGS (5)
  1. LEUKERAN [Suspect]
     Indication: CHRONIC LYMPHOCYTIC LEUKAEMIA
     Dates: start: 20130814, end: 20130824
  2. ALLOPURINOL [Suspect]
     Indication: BLOOD URIC ACID INCREASED
     Dates: start: 20130814, end: 20130824
  3. RAMIPRIL (HYDROCHLOROTHIAZIDE) [Concomitant]
  4. MODURETIC (AMILORIDE) [Concomitant]
  5. FISH OIL [Concomitant]

REACTIONS (4)
  - Drug reaction with eosinophilia and systemic symptoms [None]
  - Histiocytosis haematophagic [None]
  - Renal failure acute [None]
  - Anaemia [None]
